FAERS Safety Report 18404480 (Version 1)
Quarter: 2020Q4

REPORT INFORMATION
  Report Type: Other
  Country: SE (occurrence: SE)
  Receive Date: 20201020
  Receipt Date: 20201020
  Transmission Date: 20210114
  Serious: Yes (Hospitalization)
  Sender: FDA-Public Use
  Company Number: SE-DEXPHARM-20200890

PATIENT
  Age: 73 Year
  Sex: Female

DRUGS (9)
  1. DEXAMETHASONE. [Suspect]
     Active Substance: DEXAMETHASONE
  2. OMEPRAZOLE. [Concomitant]
     Active Substance: OMEPRAZOLE
  3. VALPROIC ACID. [Concomitant]
     Active Substance: VALPROIC ACID
  4. CEFOTAXIME [Suspect]
     Active Substance: CEFOTAXIME SODIUM
  5. OFLOXACIN. [Concomitant]
     Active Substance: OFLOXACIN
  6. PERINDOPRIL [Concomitant]
     Active Substance: PERINDOPRIL
  7. PREGABALIN. [Concomitant]
     Active Substance: PREGABALIN
  8. ACICLOVIR [Suspect]
     Active Substance: ACYCLOVIR
  9. DULOXETINE. [Concomitant]
     Active Substance: DULOXETINE

REACTIONS (1)
  - Acute generalised exanthematous pustulosis [Recovered/Resolved]
